FAERS Safety Report 8224560-8 (Version None)
Quarter: 2012Q1

REPORT INFORMATION
  Report Type: 
  Country: None (occurrence: None)
  Receive Date: 20120321
  Receipt Date: 20120313
  Transmission Date: 20120608
  Serious: Yes (Death)
  Sender: FDA-Public Use
  Company Number: SV-PFIZER INC-2012072135

PATIENT
  Sex: Female

DRUGS (3)
  1. AMLODIPINE/VALSARTAN [Suspect]
     Dosage: 320/5 MG
  2. PANTOPRAZOLE [Suspect]
     Dosage: 20 MG, UNK
  3. ESPASMO CANULASA [Suspect]

REACTIONS (1)
  - DEATH [None]
